FAERS Safety Report 4715585-5 (Version None)
Quarter: 2005Q3

REPORT INFORMATION
  Report Type: 
  Country: None (occurrence: None)
  Receive Date: 20050713
  Receipt Date: 20050322
  Transmission Date: 20060218
  Serious: Yes (Hospitalization)
  Sender: FDA-Public Use
  Company Number: 2005FR-00083

PATIENT
  Age: 39 Year
  Sex: Female

DRUGS (2)
  1. METFORMIN [Suspect]
     Dosage: ORAL
     Route: 048
  2. MEFENAMIC ACID [Concomitant]

REACTIONS (1)
  - ANAPHYLACTIC SHOCK [None]
